FAERS Safety Report 9463501 (Version 1)
Quarter: 2013Q3

REPORT INFORMATION
  Report Type: Spontaneous
  Country: GB (occurrence: GB)
  Receive Date: 20130819
  Receipt Date: 20130819
  Transmission Date: 20140515
  Serious: Yes (Death)
  Sender: FDA-Public Use
  Company Number: GB-ROCHE-1262903

PATIENT
  Age: 80 Year
  Sex: Male

DRUGS (6)
  1. LUCENTIS [Suspect]
     Indication: AGE-RELATED MACULAR DEGENERATION
     Route: 050
     Dates: start: 20130204
  2. LUCENTIS [Suspect]
     Route: 050
     Dates: start: 20130718
  3. QUININE BISULPHATE [Concomitant]
  4. LORATADIN [Concomitant]
  5. SIMVASTATIN [Concomitant]
  6. LACIDIPINE [Concomitant]

REACTIONS (1)
  - Death [Fatal]
